FAERS Safety Report 5366266-9 (Version None)
Quarter: 2007Q2

REPORT INFORMATION
  Report Type: 
  Country: None (occurrence: None)
  Receive Date: 20070619
  Receipt Date: 20070619
  Transmission Date: 20071010
  Serious: Yes (Hospitalization)
  Sender: FDA-Public Use
  Company Number: None

PATIENT
  Sex: Male
  Weight: 82.5 kg

DRUGS (2)
  1. ASPIRIN [Suspect]
     Indication: OVERDOSE
     Dosage: 80-100 TABLETS ONE TIME PO
     Route: 048
  2. DIPHENHYDRAMINE HCL [Suspect]
     Dosage: 8-12 TABLETS ONE TIME PO
     Route: 048

REACTIONS (8)
  - ANALGESIC DRUG LEVEL ABOVE THERAPEUTIC [None]
  - HYPOKALAEMIA [None]
  - METABOLIC ACIDOSIS [None]
  - MULTIPLE DRUG OVERDOSE INTENTIONAL [None]
  - SOMNOLENCE [None]
  - SUICIDE ATTEMPT [None]
  - VOMITING [None]
  - WHITE BLOOD CELL COUNT INCREASED [None]
